FAERS Safety Report 6389906-4 (Version None)
Quarter: 2009Q4

REPORT INFORMATION
  Report Type: 
  Country: None (occurrence: None)
  Receive Date: 20091006
  Receipt Date: 20090316
  Transmission Date: 20100525
  Serious: No
  Sender: FDA-Public Use
  Company Number: US-BRISTOL-MYERS SQUIBB COMPANY-14551238

PATIENT
  Age: 73 Year
  Sex: Male

DRUGS (4)
  1. AVAPRO [Suspect]
     Dosage: DRUG DISCONTINUED 5 MONTHS AGO.
     Route: 048
  2. METOPROLOL [Concomitant]
     Dosage: TAKEN FOR 3-4 YEARS.
  3. ACTOS [Concomitant]
  4. PROBENECID [Concomitant]

REACTIONS (2)
  - BLOOD CREATININE INCREASED [None]
  - BLOOD UREA INCREASED [None]
